FAERS Safety Report 23495014 (Version 2)
Quarter: 2024Q2

REPORT INFORMATION
  Report Type: Spontaneous
  Country: US (occurrence: None)
  Receive Date: 20240207
  Receipt Date: 20240402
  Transmission Date: 20240715
  Serious: Yes (Other)
  Sender: FDA-Public Use
  Company Number: 2024A024626

PATIENT
  Age: 25900 Day
  Sex: Female

DRUGS (1)
  1. FASENRA [Suspect]
     Active Substance: BENRALIZUMAB
     Dosage: 30MG/ML
     Route: 058

REACTIONS (10)
  - Pulmonary oedema [Unknown]
  - Symptom recurrence [Unknown]
  - Cough [Unknown]
  - Throat clearing [Unknown]
  - Chest pain [Unknown]
  - Condition aggravated [Unknown]
  - Feeling abnormal [Unknown]
  - Product dose omission issue [Unknown]
  - Device use issue [Unknown]
  - Device malfunction [Unknown]

NARRATIVE: CASE EVENT DATE: 20240124
